FAERS Safety Report 17152722 (Version 2)
Quarter: 2019Q4

REPORT INFORMATION
  Report Type: Spontaneous
  Country: US (occurrence: US)
  Receive Date: 20191213
  Receipt Date: 20191230
  Transmission Date: 20200122
  Serious: No
  Sender: FDA-Public Use
  Company Number: NVSC2019US064132

PATIENT
  Age: 58 Year
  Sex: Female

DRUGS (1)
  1. VIVELLE-DOT [Suspect]
     Active Substance: ESTRADIOL
     Indication: PRODUCT USED FOR UNKNOWN INDICATION
     Dosage: 0.075 MG
     Route: 062

REACTIONS (4)
  - Product adhesion issue [Unknown]
  - Product dose omission [Unknown]
  - Migraine [Unknown]
  - Palpitations [Unknown]

NARRATIVE: CASE EVENT DATE: 20191205
